FAERS Safety Report 7286972-9 (Version None)
Quarter: 2011Q1

REPORT INFORMATION
  Report Type: 
  Country: None (occurrence: None)
  Receive Date: 20110211
  Receipt Date: 20110201
  Transmission Date: 20110831
  Serious: Yes (Hospitalization)
  Sender: FDA-Public Use
  Company Number: US-BIOGENIDEC-2011BI002292

PATIENT
  Sex: Female

DRUGS (3)
  1. AVONEX [Concomitant]
     Indication: MULTIPLE SCLEROSIS
     Route: 030
     Dates: start: 20090910, end: 20100701
  2. TYSABRI [Suspect]
     Indication: MULTIPLE SCLEROSIS
     Route: 042
     Dates: start: 20100916, end: 20101111
  3. AVONEX [Concomitant]
     Route: 030
     Dates: start: 20040827

REACTIONS (3)
  - MULTIPLE SCLEROSIS [None]
  - BLADDER DYSFUNCTION [None]
  - RENAL IMPAIRMENT [None]
